FAERS Safety Report 6251537-4 (Version None)
Quarter: 2009Q2

REPORT INFORMATION
  Report Type: 
  Country: None (occurrence: None)
  Receive Date: 20090630
  Receipt Date: 20090615
  Transmission Date: 20091009
  Serious: Yes (Hospitalization, Disabling)
  Sender: FDA-Public Use
  Company Number: RS-GENENTECH-285779

PATIENT
  Sex: Female

DRUGS (1)
  1. MABTHERA [Suspect]
     Indication: NON-HODGKIN'S LYMPHOMA
     Dosage: 375 MG/KG, UNK
     Route: 042

REACTIONS (7)
  - APHASIA [None]
  - GAIT DISTURBANCE [None]
  - HEADACHE [None]
  - HYPERPYREXIA [None]
  - JC VIRUS INFECTION [None]
  - NECK PAIN [None]
  - PARAESTHESIA [None]
